FAERS Safety Report 14607698 (Version 1)
Quarter: 2018Q1

REPORT INFORMATION
  Report Type: Spontaneous
  Country: US (occurrence: US)
  Receive Date: 20180307
  Receipt Date: 20180307
  Transmission Date: 20180509
  Serious: No
  Sender: FDA-Public Use
  Company Number: US-GLAXOSMITHKLINE-US2018034112

PATIENT
  Age: 50 Year
  Sex: Female

DRUGS (2)
  1. ABREVA [Suspect]
     Active Substance: DOCOSANOL
     Indication: HERPES ZOSTER
     Dosage: UNK
  2. ALCOHOL. [Concomitant]
     Active Substance: ALCOHOL
     Indication: HERPES ZOSTER
     Dosage: UNK

REACTIONS (2)
  - Therapeutic product effective for unapproved indication [Unknown]
  - Intentional device use issue [Unknown]
